FAERS Safety Report 7904899-3 (Version None)
Quarter: 2011Q4

REPORT INFORMATION
  Report Type: 
  Country: None (occurrence: None)
  Receive Date: 20111109
  Receipt Date: 20111031
  Transmission Date: 20120403
  Serious: Yes (Other)
  Sender: FDA-Public Use
  Company Number: PHHY2011BR96400

PATIENT
  Sex: Female

DRUGS (6)
  1. METFORMIN HCL [Concomitant]
     Indication: DIABETES MELLITUS
     Dosage: UNK UKN, UNK
  2. INSULIN [Concomitant]
     Indication: DIABETES MELLITUS
     Dosage: UNK UKN, UNK
  3. SIMVASTATIN [Concomitant]
     Indication: BLOOD CHOLESTEROL
     Dosage: UNK UKN, UNK
  4. DIOVAN [Suspect]
     Dosage: UNK UKN, UNK
  5. EXFORGE [Suspect]
     Indication: HYPERTENSION
     Dosage: 1 DF,(160/5MG) TWICE DAILY
     Route: 048
  6. ASPIRIN [Concomitant]
     Indication: CARDIOMEGALY
     Dosage: UNK UKN, UNK

REACTIONS (5)
  - BLOOD PRESSURE INCREASED [None]
  - OEDEMA PERIPHERAL [None]
  - THROMBOSIS [None]
  - ANGIOPATHY [None]
  - ERYSIPELAS [None]
